FAERS Safety Report 11876749 (Version 2)
Quarter: 2016Q4

REPORT INFORMATION
  Report Type: Report from Study
  Country: US (occurrence: US)
  Receive Date: 20151229
  Receipt Date: 20161103
  Transmission Date: 20170206
  Serious: Yes (Hospitalization, Other)
  Sender: FDA-Public Use
  Company Number: US-BAYER-2015-491180

PATIENT
  Age: 42 Year
  Sex: Female

DRUGS (2)
  1. STIVARGA [Suspect]
     Active Substance: REGORAFENIB
     Indication: GASTROINTESTINAL STROMAL CANCER
     Dosage: 80 MG DAILY
     Route: 048
     Dates: start: 20161004
  2. STIVARGA [Suspect]
     Active Substance: REGORAFENIB
     Indication: COLORECTAL CANCER
     Dosage: 160 MG, QD
     Route: 048
     Dates: start: 20151202, end: 20151209

REACTIONS (9)
  - Fatigue [None]
  - Pyrexia [None]
  - Weight decreased [None]
  - Abdominal pain [None]
  - Pain in extremity [None]
  - Ammonia increased [None]
  - Urinary tract infection [None]
  - Decreased appetite [None]
  - Dysphonia [None]

NARRATIVE: CASE EVENT DATE: 20151209
